FAERS Safety Report 6690435-9 (Version None)
Quarter: 2010Q2

REPORT INFORMATION
  Report Type: 
  Country: None (occurrence: None)
  Receive Date: 20100420
  Receipt Date: 20100420
  Transmission Date: 20101027
  Serious: Yes (Life-Threatening, Hospitalization, Disabling, Other)
  Sender: FDA-Public Use
  Company Number: None

PATIENT
  Age: 50 Year
  Sex: Female
  Weight: 72.5755 kg

DRUGS (4)
  1. OV-CON 35 0.4/0.035MG TEVA/BARR [Suspect]
     Indication: ENDOMETRIOSIS
     Dates: start: 20040101, end: 20100101
  2. OV-CON 35 0.4/0.035MG TEVA/BARR [Suspect]
     Indication: MENORRHAGIA
     Dates: start: 20040101, end: 20100101
  3. GLYCOPYRROLATE [Concomitant]
  4. NORTRIPTYLINE HCL [Concomitant]

REACTIONS (5)
  - BRAIN OEDEMA [None]
  - CAROTID ARTERY THROMBOSIS [None]
  - FALL [None]
  - HEMIPLEGIA [None]
  - ISCHAEMIC STROKE [None]
